FAERS Safety Report 21599732 (Version 1)
Quarter: 2022Q4

REPORT INFORMATION
  Report Type: Spontaneous
  Country: US (occurrence: None)
  Receive Date: 20221115
  Receipt Date: 20221115
  Transmission Date: 20230112
  Serious: Yes (Hospitalization)
  Sender: FDA-Public Use
  Company Number: None

PATIENT
  Age: 77 Year
  Sex: Male

DRUGS (1)
  1. CAPECITABINE [Suspect]
     Active Substance: CAPECITABINE
     Route: 048

REACTIONS (11)
  - Fatigue [None]
  - Nausea [None]
  - Decreased appetite [None]
  - Anger [None]
  - Weight decreased [None]
  - Abdominal pain upper [None]
  - Dysgeusia [None]
  - Gait disturbance [None]
  - Headache [None]
  - Asthenia [None]
  - Diarrhoea [None]

NARRATIVE: CASE EVENT DATE: 20221115
